FAERS Safety Report 11783014 (Version 2)
Quarter: 2015Q4

REPORT INFORMATION
  Report Type: Spontaneous
  Country: JP (occurrence: JP)
  Receive Date: 20151127
  Receipt Date: 20151210
  Transmission Date: 20160305
  Serious: Yes (Death, Other)
  Sender: FDA-Public Use
  Company Number: JP-ASTRAZENECA-2015SF20030

PATIENT
  Age: 68 Year
  Sex: Female

DRUGS (4)
  1. MEROPEN [Suspect]
     Active Substance: MEROPENEM
     Dosage: (NON-AZ PRODUCT)
     Route: 042
  2. NOREPINEPHRINE [Concomitant]
     Active Substance: NOREPINEPHRINE\NOREPINEPHRINE BITARTRATE
  3. PITRESSIN [Concomitant]
     Active Substance: VASOPRESSIN
     Dosage: 1.8 UNITS/HOUR
  4. PROPOFOL. [Suspect]
     Active Substance: PROPOFOL
     Dosage: 40-50 MG/HOUR
     Route: 042

REACTIONS (5)
  - Propofol infusion syndrome [Fatal]
  - Pyrexia [Fatal]
  - Rhabdomyolysis [Fatal]
  - Hyperkalaemia [Fatal]
  - Metabolic acidosis [Fatal]
